FAERS Safety Report 23262020 (Version 1)
Quarter: 2023Q4

REPORT INFORMATION
  Report Type: Spontaneous
  Country: IT (occurrence: IT)
  Receive Date: 20231205
  Receipt Date: 20231205
  Transmission Date: 20240109
  Serious: Yes (Other)
  Sender: FDA-Public Use
  Company Number: IT-MYLANLABS-2023M1128766

PATIENT
  Age: 55 Year
  Sex: Female

DRUGS (4)
  1. LETROZOLE [Suspect]
     Active Substance: LETROZOLE
     Indication: Breast cancer
     Dosage: 2.5 MILLIGRAM, QD
     Route: 065
     Dates: start: 201905
  2. LETROZOLE [Suspect]
     Active Substance: LETROZOLE
     Indication: Metastases to bone
  3. RIBOCICLIB [Interacting]
     Active Substance: RIBOCICLIB
     Indication: Breast cancer
     Dosage: 600 MILLIGRAM, QD, FROM DAY1  TO 21, FOLLOWED BY A 7-DAY BREAK, ACCORDING TO A 28-DAY CYCLE
     Route: 065
     Dates: start: 201905, end: 202010
  4. RIBOCICLIB [Interacting]
     Active Substance: RIBOCICLIB
     Indication: Metastases to bone
     Dosage: 400 MILLIGRAM, QD, FROM DAY 1  TO 21, FOLLOWED BY A 7-DAY BREAK, ACCORDING TO A 28-DAY CYCLE
     Route: 065
     Dates: start: 202010

REACTIONS (1)
  - Haematotoxicity [Recovered/Resolved]
